FAERS Safety Report 6857093-1 (Version None)
Quarter: 2010Q3

REPORT INFORMATION
  Report Type: 
  Country: None (occurrence: None)
  Receive Date: 20100719
  Receipt Date: 20100713
  Transmission Date: 20110219
  Serious: Yes (Death, Life-Threatening, Hospitalization)
  Sender: FDA-Public Use
  Company Number: B0538456A

PATIENT
  Sex: Female
  Weight: 60 kg

DRUGS (10)
  1. LAPATINIB [Suspect]
     Indication: BREAST CANCER
     Dosage: 1000MG PER DAY
     Route: 048
     Dates: start: 20080617, end: 20080919
  2. TRASTUZUMAB [Suspect]
     Indication: BREAST CANCER
     Route: 042
     Dates: start: 20080616, end: 20080908
  3. KEPPRA [Concomitant]
     Indication: EPILEPSY
     Dosage: 1000MG TWICE PER DAY
     Route: 048
     Dates: start: 20080526, end: 20081023
  4. HYDROCHLOROTHIAZIDE [Concomitant]
     Dates: start: 20070404, end: 20081023
  5. PREDNISOLON [Concomitant]
     Dates: start: 20070404, end: 20081023
  6. ASPIRIN [Concomitant]
     Dates: start: 20070404, end: 20081023
  7. INSUMAN [Concomitant]
     Dates: start: 19760101, end: 20081023
  8. ACTRAPID [Concomitant]
     Dates: start: 19760101, end: 20081023
  9. TILIDIN [Concomitant]
     Dates: start: 20080804, end: 20081023
  10. IMODIUM [Concomitant]
     Dates: start: 20080707, end: 20080919

REACTIONS (3)
  - CARDIAC FAILURE CONGESTIVE [None]
  - CARDIOMEGALY [None]
  - PLEURAL EFFUSION [None]
